FAERS Safety Report 10066472 (Version 1)
Quarter: 2014Q2

REPORT INFORMATION
  Report Type: Spontaneous
  Country: US (occurrence: None)
  Receive Date: 20140401
  Receipt Date: 20140401
  Transmission Date: 20141212
  Serious: Yes (Other)
  Sender: FDA-Public Use
  Company Number: PHEH2013US010922

PATIENT
  Sex: Male

DRUGS (1)
  1. EXELON PATCH (RIVASTIGMINE) TRANS-THERAPEUTIC-SYSTEM [Suspect]
     Route: 062

REACTIONS (1)
  - Gastrointestinal haemorrhage [None]
